FAERS Safety Report 9663182 (Version 4)
Quarter: 2014Q1

REPORT INFORMATION
  Report Type: Spontaneous
  Country: DE (occurrence: DE)
  Receive Date: 20131101
  Receipt Date: 20140124
  Transmission Date: 20141002
  Serious: Yes (Other)
  Sender: FDA-Public Use
  Company Number: DE-AMGEN-DEUSP2013076398

PATIENT
  Age: 77 Year
  Sex: Female
  Weight: 50 kg

DRUGS (3)
  1. PROLIA [Suspect]
     Indication: OSTEOPOROSIS POSTMENOPAUSAL
     Dosage: 60 MG, Q6MO
     Route: 058
     Dates: start: 201109, end: 201303
  2. DEKRISTOL [Concomitant]
     Indication: OSTEOPOROSIS
     Dosage: 20000 UNK, Q2WK
     Route: 048
  3. CALCIUM [Concomitant]
     Indication: OSTEOPOROSIS
     Dosage: 500 UNK, BID
     Route: 048

REACTIONS (1)
  - Sjogren^s syndrome [Not Recovered/Not Resolved]
